FAERS Safety Report 4746897-7 (Version None)
Quarter: 2005Q3

REPORT INFORMATION
  Report Type: 
  Country: None (occurrence: None)
  Receive Date: 20050817
  Receipt Date: 20050805
  Transmission Date: 20060218
  Serious: Yes (Hospitalization)
  Sender: FDA-Public Use
  Company Number: US-ROCHE-413371

PATIENT
  Age: 57 Year
  Sex: Female

DRUGS (2)
  1. PEGASYS [Suspect]
     Indication: DRUG USE FOR UNKNOWN INDICATION
     Dosage: STRENGTH/FORMULATION: 180 MCG/0.5 ML.
     Route: 058
     Dates: start: 20050728
  2. EFFEXOR [Concomitant]
     Indication: DEPRESSION
     Route: 048
     Dates: start: 20050615

REACTIONS (8)
  - CRYING [None]
  - DYSARTHRIA [None]
  - ECONOMIC PROBLEM [None]
  - FALL [None]
  - HEPATIC CIRRHOSIS [None]
  - JOINT SPRAIN [None]
  - MENTAL DISORDER [None]
  - NAUSEA [None]
